FAERS Safety Report 6004476-8 (Version None)
Quarter: 2008Q4

REPORT INFORMATION
  Report Type: 
  Country: None (occurrence: None)
  Receive Date: 20081216
  Receipt Date: 20081211
  Transmission Date: 20090506
  Serious: Yes (Life-Threatening, Hospitalization)
  Sender: FDA-Public Use
  Company Number: PHHO2008DE14733

PATIENT
  Sex: Female
  Weight: 85 kg

DRUGS (3)
  1. SANDOSTATIN LAR [Suspect]
     Dosage: 20MG MONTHLY
     Dates: start: 20080902
  2. SOMAVERT [Suspect]
     Indication: ACROMEGALY
     Dosage: 10MG DAILY
     Dates: start: 20080305
  3. LEVOTHYROXINE SODIUM [Concomitant]

REACTIONS (2)
  - LOSS OF CONSCIOUSNESS [None]
  - SUBARACHNOID HAEMORRHAGE [None]
